FAERS Safety Report 10350447 (Version 2)
Quarter: 2014Q3

REPORT INFORMATION
  Report Type: Report from Study
  Country: US (occurrence: US)
  Receive Date: 20140730
  Receipt Date: 20140730
  Transmission Date: 20150326
  Serious: No
  Sender: FDA-Public Use
  Company Number: US-ABBVIE-13P-163-1059568-00

PATIENT
  Age: 79 Year
  Sex: Female
  Weight: 77.63 kg

DRUGS (14)
  1. ELMIRON [Concomitant]
     Active Substance: PENTOSAN POLYSULFATE SODIUM
     Indication: BLADDER DISORDER
  2. OMEPRAZOLE. [Concomitant]
     Active Substance: OMEPRAZOLE
     Indication: GASTROOESOPHAGEAL REFLUX DISEASE
  3. NIASPAN [Suspect]
     Active Substance: NIACIN
     Indication: BLOOD TRIGLYCERIDES INCREASED
  4. OMEGA Q ENZYME [Concomitant]
     Indication: VITAMIN SUPPLEMENTATION
  5. VITAMIN E [Concomitant]
     Active Substance: .ALPHA.-TOCOPHEROL
     Indication: VITAMIN SUPPLEMENTATION
  6. PHILLIPS PROBIOTIC [Concomitant]
     Indication: PROPHYLAXIS
  7. NIASPAN [Suspect]
     Active Substance: NIACIN
     Indication: LOW DENSITY LIPOPROTEIN INCREASED
     Dosage: EVERY NIGHT
     Route: 048
     Dates: start: 201209
  8. NIASPAN [Suspect]
     Active Substance: NIACIN
     Indication: BLOOD CHOLESTEROL INCREASED
  9. JANUVIA [Concomitant]
     Active Substance: SITAGLIPTIN PHOSPHATE
     Indication: DIABETES MELLITUS
  10. BENICAR [Concomitant]
     Active Substance: OLMESARTAN MEDOXOMIL
     Indication: HYPERTENSION
  11. DETROL [Concomitant]
     Active Substance: TOLTERODINE TARTRATE
     Indication: URINARY INCONTINENCE
  12. COREG [Concomitant]
     Active Substance: CARVEDILOL
     Indication: ATRIAL FIBRILLATION
  13. PRADAXA [Concomitant]
     Active Substance: DABIGATRAN ETEXILATE MESYLATE
     Indication: ATRIAL FIBRILLATION
  14. CALTRATE WITH VITAMIN D [Concomitant]
     Active Substance: CALCIUM CARBONATE\VITAMIN D
     Indication: VITAMIN SUPPLEMENTATION

REACTIONS (9)
  - Flushing [Not Recovered/Not Resolved]
  - Anaemia [Unknown]
  - Blood glucose increased [Not Recovered/Not Resolved]
  - Weight increased [Unknown]
  - Large intestinal haemorrhage [Unknown]
  - Pruritus [Unknown]
  - Myalgia [Not Recovered/Not Resolved]
  - Paraesthesia [Unknown]
  - Feeling hot [Unknown]

NARRATIVE: CASE EVENT DATE: 201209
